FAERS Safety Report 17861244 (Version 2)
Quarter: 2022Q2

REPORT INFORMATION
  Report Type: Report from Study
  Country: US (occurrence: US)
  Receive Date: 20200604
  Receipt Date: 20220513
  Transmission Date: 20220721
  Serious: No
  Sender: FDA-Public Use
  Company Number: US-HARMONY BIOSCIENCES-2020HMY00264

PATIENT
  Age: 28 Year
  Sex: Female
  Weight: 75.283 kg

DRUGS (9)
  1. WAKIX [Suspect]
     Active Substance: PITOLISANT HYDROCHLORIDE
     Indication: Narcolepsy
     Dosage: 8.9 MG, 1X/DAY
     Route: 048
     Dates: start: 20200303, end: 20200309
  2. WAKIX [Suspect]
     Active Substance: PITOLISANT HYDROCHLORIDE
     Indication: Narcolepsy
     Dosage: 17.8 MG, 1X/DAY
     Route: 048
     Dates: start: 20200310
  3. ACYCLOVIR [Concomitant]
     Active Substance: ACYCLOVIR
  4. ADVIL [Concomitant]
     Active Substance: IBUPROFEN
  5. METHYLPHENIDATE [Concomitant]
     Active Substance: METHYLPHENIDATE
  6. VITAMINS [Concomitant]
     Active Substance: VITAMINS
  7. NUVIGIL [Concomitant]
     Active Substance: ARMODAFINIL
  8. PSEUDOEPHEDRINE [Concomitant]
     Active Substance: PSEUDOEPHEDRINE
  9. TYLENOL [Concomitant]
     Active Substance: ACETAMINOPHEN

REACTIONS (1)
  - Drug ineffective [Not Recovered/Not Resolved]

NARRATIVE: CASE EVENT DATE: 20200303
